FAERS Safety Report 23959848 (Version 1)
Quarter: 2024Q2

REPORT INFORMATION
  Report Type: Spontaneous
  Country: US (occurrence: US)
  Receive Date: 20240611
  Receipt Date: 20240611
  Transmission Date: 20240716
  Serious: Yes (Other)
  Sender: FDA-Public Use
  Company Number: US-AMGEN-USASP2024110944

PATIENT

DRUGS (14)
  1. RITUXIMAB [Suspect]
     Active Substance: RITUXIMAB
     Indication: Diffuse large B-cell lymphoma
     Dosage: UNK
     Route: 065
  2. RITUXIMAB [Suspect]
     Active Substance: RITUXIMAB
     Indication: Central nervous system lymphoma
  3. PREDNISONE [Suspect]
     Active Substance: PREDNISONE
     Indication: Diffuse large B-cell lymphoma
     Dosage: UNK
     Route: 065
  4. PREDNISONE [Suspect]
     Active Substance: PREDNISONE
     Indication: Central nervous system lymphoma
  5. PREDNISONE [Suspect]
     Active Substance: PREDNISONE
     Indication: Off label use
  6. METHOTREXATE [Concomitant]
     Active Substance: METHOTREXATE
     Indication: Haematological malignancy
     Dosage: }500 MG/M2 OVER 4 HOURS ONCE PER CYCLE
     Route: 065
  7. SULFAMETHOXAZOLE [Concomitant]
     Active Substance: SULFAMETHOXAZOLE
     Indication: Prophylaxis
     Dosage: UNK
     Route: 065
  8. TRIMETHOPRIM [Concomitant]
     Active Substance: TRIMETHOPRIM
     Indication: Prophylaxis
     Dosage: 80 MILLIGRAM, QD
  9. TRIMETHOPRIM [Concomitant]
     Active Substance: TRIMETHOPRIM
     Dosage: 160 MILLIGRAM, 3 TIMES/WK
  10. SODIUM BICARBONATE [Concomitant]
     Active Substance: SODIUM BICARBONATE
  11. LEUCOVORIN [Concomitant]
     Active Substance: LEUCOVORIN\LEUCOVORIN CALCIUM
     Dosage: 5 MILLIGRAM, Q6H, FOR 72 HOURS
     Route: 048
  12. CYCLOPHOSPHAMIDE [Concomitant]
     Active Substance: CYCLOPHOSPHAMIDE
     Indication: Central nervous system lymphoma
  13. DOXORUBICIN [Concomitant]
     Active Substance: DOXORUBICIN
     Indication: Central nervous system lymphoma
  14. VINCRISTINE [Concomitant]
     Active Substance: VINCRISTINE
     Indication: Central nervous system lymphoma

REACTIONS (10)
  - Leukopenia [Unknown]
  - Thrombocytopenia [Unknown]
  - Neutropenia [Unknown]
  - Febrile neutropenia [Unknown]
  - Aspartate aminotransferase abnormal [Unknown]
  - Blood bilirubin abnormal [Unknown]
  - Mucosal inflammation [Unknown]
  - Blood creatinine abnormal [Unknown]
  - Alanine aminotransferase abnormal [Unknown]
  - Anaemia [Unknown]
